FAERS Safety Report 23934316 (Version 2)
Quarter: 2024Q2

REPORT INFORMATION
  Report Type: Spontaneous
  Country: US (occurrence: US)
  Receive Date: 20240603
  Receipt Date: 20240618
  Transmission Date: 20240715
  Serious: No
  Sender: FDA-Public Use
  Company Number: US-JNJFOC-20240602439

PATIENT
  Sex: Female

DRUGS (3)
  1. UPTRAVI [Suspect]
     Active Substance: SELEXIPAG
     Indication: Product used for unknown indication
     Route: 048
  2. UPTRAVI [Suspect]
     Active Substance: SELEXIPAG
     Route: 048
  3. AMBRISENTAN [Suspect]
     Active Substance: AMBRISENTAN
     Indication: Pulmonary hypertension
     Route: 048
     Dates: start: 20230906

REACTIONS (8)
  - Blood uric acid increased [Unknown]
  - Gout [Recovering/Resolving]
  - Headache [Not Recovered/Not Resolved]
  - Diarrhoea [Recovering/Resolving]
  - Peripheral swelling [Not Recovered/Not Resolved]
  - Dyspnoea exertional [Unknown]
  - Restlessness [Unknown]
  - Dehydration [Unknown]
